FAERS Safety Report 10705780 (Version 1)
Quarter: 2015Q1

REPORT INFORMATION
  Report Type: Spontaneous
  Country: AT (occurrence: AT)
  Receive Date: 20150112
  Receipt Date: 20150112
  Transmission Date: 20150721
  Serious: Yes (Other)
  Sender: FDA-Public Use
  Company Number: AT-AMGEN GMBH-AUTSP2015001345

PATIENT
  Sex: Female

DRUGS (2)
  1. PROLIA [Suspect]
     Active Substance: DENOSUMAB
     Indication: OSTEOPOROSIS
     Dosage: 1 DF, UNK
     Route: 065
     Dates: start: 20140603, end: 20141203
  2. OLEOVIT D3 [Concomitant]

REACTIONS (2)
  - Cough [Unknown]
  - Respiratory distress [Unknown]

NARRATIVE: CASE EVENT DATE: 20141204
